FAERS Safety Report 14225358 (Version 1)
Quarter: 2017Q4

REPORT INFORMATION
  Report Type: Spontaneous
  Country: US (occurrence: US)
  Receive Date: 20171126
  Receipt Date: 20171126
  Transmission Date: 20180321
  Serious: Yes (Disabling, Other)
  Sender: FDA-Public Use
  Company Number: None

PATIENT
  Age: 49 Year
  Sex: Male
  Weight: 87.75 kg

DRUGS (13)
  1. PLANT BASED NUTRIONAL SHAKES [Concomitant]
  2. ADVAIR DISKUS [Suspect]
     Active Substance: FLUTICASONE PROPIONATE\SALMETEROL XINAFOATE
     Indication: DYSPNOEA
     Dosage: ?          QUANTITY:1 INHALATION(S);?
     Route: 048
     Dates: start: 20171017, end: 20171020
  3. ADVAIR DISKUS [Suspect]
     Active Substance: FLUTICASONE PROPIONATE\SALMETEROL XINAFOATE
     Indication: PULMONARY CONGESTION
     Dosage: ?          QUANTITY:1 INHALATION(S);?
     Route: 048
     Dates: start: 20171017, end: 20171020
  4. VITAMIN B12 [Concomitant]
     Active Substance: CYANOCOBALAMIN
  5. WEST WHEAT GRASS [Concomitant]
     Active Substance: PASCOPYRUM SMITHII POLLEN
  6. LEVOXYL [Concomitant]
     Active Substance: LEVOTHYROXINE SODIUM
  7. VITAMIN D [Concomitant]
     Active Substance: CHOLECALCIFEROL
  8. SUDAFED [Concomitant]
     Active Substance: PSEUDOEPHEDRINE HYDROCHLORIDE
  9. FISH OIL [Concomitant]
     Active Substance: FISH OIL
  10. LIVER CAPSULES [Concomitant]
  11. ADVAIR DISKUS [Suspect]
     Active Substance: FLUTICASONE PROPIONATE\SALMETEROL XINAFOATE
     Indication: CHEST DISCOMFORT
     Dosage: ?          QUANTITY:1 INHALATION(S);?
     Route: 048
     Dates: start: 20171017, end: 20171020
  12. B-PLUS COMPLEX [Concomitant]
  13. MARINE COLLAGEN W/ HYALURONIC ACID [Concomitant]

REACTIONS (5)
  - Salivary hypersecretion [None]
  - Dysphonia [None]
  - Dyspnoea [None]
  - Drug ineffective [None]
  - Choking sensation [None]

NARRATIVE: CASE EVENT DATE: 20171022
